FAERS Safety Report 6831890-0 (Version None)
Quarter: 2010Q3

REPORT INFORMATION
  Report Type: 
  Country: None (occurrence: None)
  Receive Date: 20100707
  Receipt Date: 20100622
  Transmission Date: 20110219
  Serious: Yes (Death, Other)
  Sender: FDA-Public Use
  Company Number: 010021

PATIENT
  Age: 63 Year
  Sex: Female

DRUGS (5)
  1. BUSULFEX [Suspect]
     Indication: STEM CELL TRANSPLANT
     Dosage: 6 ML, DAILY DOSE, INTRAVENOUS
     Route: 042
     Dates: start: 20071019, end: 20071020
  2. FLUDARABINE PHOSPHATE [Concomitant]
  3. PHENYTOIN [Concomitant]
  4. FILGRASTIM (FILGRASTIM) [Concomitant]
  5. TACROLIMUS [Concomitant]

REACTIONS (10)
  - BLOOD POTASSIUM INCREASED [None]
  - DIARRHOEA [None]
  - FEBRILE NEUTROPENIA [None]
  - HEPATIC FUNCTION ABNORMAL [None]
  - LEUKAEMIA RECURRENT [None]
  - MALAISE [None]
  - NAUSEA [None]
  - RENAL IMPAIRMENT [None]
  - STAPHYLOCOCCAL SEPSIS [None]
  - STOMATITIS [None]
